FAERS Safety Report 6109974-4 (Version None)
Quarter: 2009Q1

REPORT INFORMATION
  Report Type: 
  Country: None (occurrence: None)
  Receive Date: 20090310
  Receipt Date: 20081015
  Transmission Date: 20090719
  Serious: No
  Sender: FDA-Public Use
  Company Number: A0752500A

PATIENT
  Age: 63 Year
  Sex: Female

DRUGS (4)
  1. NICORETTE [Suspect]
     Indication: SMOKING CESSATION THERAPY
     Route: 002
     Dates: start: 20081012, end: 20081014
  2. PLAVIX [Concomitant]
  3. ZOCOR [Concomitant]
  4. WELLBUTRIN [Concomitant]
     Route: 048

REACTIONS (2)
  - ANXIETY [None]
  - SOCIAL AVOIDANT BEHAVIOUR [None]
